FAERS Safety Report 4999234-7 (Version None)
Quarter: 2006Q2

REPORT INFORMATION
  Report Type: 
  Country: None (occurrence: None)
  Receive Date: 20060511
  Receipt Date: 20060504
  Transmission Date: 20061013
  Serious: Yes (Hospitalization)
  Sender: FDA-Public Use
  Company Number: PHEH2006US05902

PATIENT
  Age: 6 Year
  Sex: Female
  Weight: 23.1 kg

DRUGS (1)
  1. EXJADE [Suspect]
     Indication: HAEMOSIDEROSIS
     Dosage: 500 MG, QD
     Route: 048
     Dates: start: 20060215, end: 20060501

REACTIONS (4)
  - HAEMATURIA [None]
  - POST STREPTOCOCCAL GLOMERULONEPHRITIS [None]
  - PYREXIA [None]
  - STREPTOCOCCAL SEROLOGY POSITIVE [None]
